FAERS Safety Report 4626172-1 (Version None)
Quarter: 2005Q2

REPORT INFORMATION
  Report Type: 
  Country: None (occurrence: None)
  Receive Date: 20050331
  Receipt Date: 20040601
  Transmission Date: 20051028
  Serious: Yes (Life-Threatening, Hospitalization)
  Sender: FDA-Public Use
  Company Number: 200412708BCC

PATIENT
  Age: 57 Year
  Sex: Male
  Weight: 81.6475 kg

DRUGS (9)
  1. ALEVE (CAPLET) [Suspect]
     Indication: ARTHRALGIA
     Dosage: 220-440 MG, BID, ORAL; 440 MG, BID, ORAL; 440 MG, BID, ORAL
     Route: 048
     Dates: start: 20040409, end: 20040416
  2. ALEVE (CAPLET) [Suspect]
     Indication: MUSCLE STRAIN
     Dosage: 220-440 MG, BID, ORAL; 440 MG, BID, ORAL; 440 MG, BID, ORAL
     Route: 048
     Dates: start: 20040409, end: 20040416
  3. ALEVE (CAPLET) [Suspect]
     Indication: ARTHRALGIA
     Dosage: 220-440 MG, BID, ORAL; 440 MG, BID, ORAL; 440 MG, BID, ORAL
     Route: 048
     Dates: start: 20040501, end: 20040505
  4. ALEVE (CAPLET) [Suspect]
     Indication: MUSCLE STRAIN
     Dosage: 220-440 MG, BID, ORAL; 440 MG, BID, ORAL; 440 MG, BID, ORAL
     Route: 048
     Dates: start: 20040501, end: 20040505
  5. ALEVE (CAPLET) [Suspect]
     Indication: ARTHRALGIA
     Dosage: 220-440 MG, BID, ORAL; 440 MG, BID, ORAL; 440 MG, BID, ORAL
     Route: 048
     Dates: start: 20040522
  6. ALEVE (CAPLET) [Suspect]
     Indication: MUSCLE STRAIN
     Dosage: 220-440 MG, BID, ORAL; 440 MG, BID, ORAL; 440 MG, BID, ORAL
     Route: 048
     Dates: start: 20040522
  7. ZOLOFT [Suspect]
     Dosage: 50 MG, HS, ORAL
     Route: 048
  8. BEER (ETHANOL) [Suspect]
     Dosage: 350-475ML, ONCE, ORAL
     Route: 048
  9. PREVACID [Concomitant]

REACTIONS (8)
  - CARDIO-RESPIRATORY ARREST [None]
  - DEPRESSED LEVEL OF CONSCIOUSNESS [None]
  - FALL [None]
  - MUSCLE RIGIDITY [None]
  - OCULAR HYPERAEMIA [None]
  - PARTIAL SEIZURES [None]
  - PETECHIAE [None]
  - SUFFOCATION FEELING [None]
